FAERS Safety Report 5277556-2 (Version None)
Quarter: 2007Q1

REPORT INFORMATION
  Report Type: 
  Country: None (occurrence: None)
  Receive Date: 20070321
  Receipt Date: 20070118
  Transmission Date: 20070707
  Serious: Yes (Other)
  Sender: FDA-Public Use
  Company Number: 230400K07USA

PATIENT
  Age: 62 Year
  Sex: Female

DRUGS (2)
  1. REBIF [Suspect]
     Indication: MULTIPLE SCLEROSIS
     Dosage: 44 MCG, 3 IN 1 WEEKS, SUBCUTANEOUS
     Route: 058
     Dates: start: 20020724
  2. SOLU-MEDROL [Concomitant]

REACTIONS (6)
  - CONDITION AGGRAVATED [None]
  - HIP ARTHROPLASTY [None]
  - MULTIPLE SCLEROSIS [None]
  - NERVE INJURY [None]
  - OSTEONECROSIS [None]
  - POST PROCEDURAL COMPLICATION [None]
